FAERS Safety Report 4600457-7 (Version None)
Quarter: 2005Q1

REPORT INFORMATION
  Report Type: 
  Country: None (occurrence: None)
  Receive Date: 20050304
  Receipt Date: 20050225
  Transmission Date: 20050727
  Serious: Yes (Hospitalization, Congenital Anomaly, Other)
  Sender: FDA-Public Use
  Company Number: 05-02-0314

PATIENT
  Age: 1 Day
  Sex: Male

DRUGS (1)
  1. CLOZAPINE [Suspect]
     Indication: SCHIZOPHRENIA
     Dosage: 200MG QD
     Route: 064

REACTIONS (23)
  - CAESAREAN SECTION [None]
  - CHEST X-RAY ABNORMAL [None]
  - COMA NEONATAL [None]
  - CONGENITAL ANOMALY [None]
  - CONGENITAL CENTRAL NERVOUS SYSTEM ANOMALY [None]
  - CONGENITAL FLOPPY INFANT [None]
  - CONVULSION NEONATAL [None]
  - DEVELOPMENTAL DELAY [None]
  - DRUG EXPOSURE DURING PREGNANCY [None]
  - ENCEPHALOPATHY NEONATAL [None]
  - FOETAL ARRHYTHMIA [None]
  - FOETAL DISORDER [None]
  - HEART DISEASE CONGENITAL [None]
  - HERNIA CONGENITAL [None]
  - MICROGENIA [None]
  - MYOCARDITIS [None]
  - NEONATAL APNOEIC ATTACK [None]
  - NEONATAL DISORDER [None]
  - NEONATAL RESPIRATORY FAILURE [None]
  - OPISTHOTONUS [None]
  - PHYSICAL TESTICLE EXAMINATION ABNORMAL [None]
  - PREMATURE BABY [None]
  - TRISMUS [None]
